FAERS Safety Report 7370994-3 (Version None)
Quarter: 2011Q1

REPORT INFORMATION
  Report Type: 
  Country: None (occurrence: None)
  Receive Date: 20110324
  Receipt Date: 20090930
  Transmission Date: 20110831
  Serious: Yes (Hospitalization, Other)
  Sender: FDA-Public Use
  Company Number: US-BAYER-200935092NA

PATIENT
  Sex: Male
  Weight: 108 kg

DRUGS (29)
  1. LISINOPRIL [Concomitant]
     Dosage: 20 MG, QD
     Route: 048
     Dates: start: 20060101
  2. CALCITRIOL [Concomitant]
     Dosage: UNK
     Route: 048
     Dates: start: 20060101
  3. LIPITOR [Concomitant]
     Dosage: 10 MG, UNK
     Route: 048
  4. GLYBURIDE [Concomitant]
     Dosage: 20 MG, QD
     Route: 048
  5. HEPARIN [Concomitant]
     Dosage: 7400 U, UNK
     Route: 042
     Dates: start: 20060120
  6. CALCIUM CHLORIDE [Concomitant]
     Dosage: 2 G, UNK
     Route: 042
     Dates: start: 20060120
  7. MORPHINE [Concomitant]
     Dosage: 150 MG, UNK
     Route: 042
     Dates: start: 20060120, end: 20060120
  8. TRASYLOL [Suspect]
     Indication: MITRAL VALVE REPAIR
     Dosage: 50 ML, Q1HR
     Dates: start: 20060120, end: 20060120
  9. LEVOPHED [Concomitant]
     Dosage: 20 MG, PRN
     Route: 042
     Dates: start: 20060120
  10. PHOSLO [Concomitant]
     Dosage: 557 MG, UNK
     Route: 048
     Dates: start: 20060101
  11. PRANDIN [Concomitant]
     Dosage: 1 MG, UNK
     Route: 048
     Dates: start: 20060101
  12. MUCOMYST [Concomitant]
     Dosage: UNK
     Dates: start: 20060117
  13. INSULIN [Concomitant]
     Dosage: 5 U, UNK
     Route: 042
     Dates: start: 20060120, end: 20060123
  14. EPINEPHRINE [Concomitant]
     Dosage: UNK
     Route: 042
     Dates: start: 20060120
  15. SODIUM BICARBONATE [Concomitant]
     Dosage: 150 MEQ, UNK
     Route: 042
     Dates: start: 20060120, end: 20060120
  16. APRESOLINE [Concomitant]
     Dosage: 25 MG, TID
     Route: 048
  17. ANCEF [Concomitant]
     Dosage: 1 G, UNK
     Route: 042
     Dates: start: 20060120, end: 20060120
  18. MILRINONE [Concomitant]
     Dosage: UNK
     Route: 041
     Dates: start: 20060120
  19. COREG [Concomitant]
     Dosage: 25 MG, UNK
     Route: 048
     Dates: start: 20060101
  20. TOPROL-XL [Concomitant]
     Dosage: 50 MG, UNK
     Route: 048
  21. PLATELETS [Concomitant]
     Dosage: 725 ML, UNK
     Dates: start: 20060120
  22. TRASYLOL [Suspect]
     Dosage: 200 ML, UNK
     Route: 042
     Dates: start: 20060120, end: 20060121
  23. ASPIRIN [Concomitant]
     Dosage: 81 MG, UNK
     Route: 048
  24. NITROGLYCERIN [Concomitant]
     Dosage: UNK
     Dates: start: 20060120
  25. TRASYLOL [Suspect]
     Indication: CORONARY ARTERY BYPASS
     Dosage: 200 MG, ONCE
     Route: 042
     Dates: start: 20060120, end: 20060120
  26. SODIUM BICARBONATE [Concomitant]
     Dosage: UNK
     Dates: start: 20060117
  27. LASIX [Concomitant]
     Dosage: 40 MG, QD
     Route: 048
     Dates: start: 20060101
  28. MANNITOL [Concomitant]
     Dosage: 100 G/DL, UNK
     Route: 042
     Dates: start: 20060120, end: 20060120
  29. PROTAMINE SULFATE [Concomitant]
     Dosage: 500 MG, UNK
     Route: 042
     Dates: start: 20060120, end: 20060120

REACTIONS (12)
  - CARDIAC DISORDER [None]
  - RENAL INJURY [None]
  - RENAL IMPAIRMENT [None]
  - INJURY [None]
  - ANXIETY [None]
  - PAIN [None]
  - RENAL FAILURE [None]
  - UNEVALUABLE EVENT [None]
  - STRESS [None]
  - LEUKAEMIA [None]
  - EMOTIONAL DISTRESS [None]
  - FEAR [None]
